FAERS Safety Report 9900101 (Version 3)
Quarter: 2016Q3

REPORT INFORMATION
  Report Type: Spontaneous
  Country: FR (occurrence: FR)
  Receive Date: 20140214
  Receipt Date: 20160906
  Transmission Date: 20161109
  Serious: Yes (Congenital Anomaly, Other)
  Sender: FDA-Public Use
  Company Number: FR-ABBVIE-13P-056-1045594-00

PATIENT
  Sex: Male

DRUGS (4)
  1. DEPAKINE CHRONO [Suspect]
     Active Substance: VALPROATE SODIUM
     Indication: MATERNAL EXPOSURE TIMING UNSPECIFIED
     Route: 064
  2. ARTANE [Concomitant]
     Active Substance: TRIHEXYPHENIDYL HYDROCHLORIDE
     Indication: PRODUCT USED FOR UNKNOWN INDICATION
  3. KEPPRA [Concomitant]
     Active Substance: LEVETIRACETAM
     Indication: PRODUCT USED FOR UNKNOWN INDICATION
  4. INEXIUM (ESOMEPRAZOLE) [Concomitant]
     Active Substance: ESOMEPRAZOLE
     Indication: PRODUCT USED FOR UNKNOWN INDICATION

REACTIONS (38)
  - Ventricular septal defect [Unknown]
  - Atrial septal defect [Unknown]
  - Pulmonary arterial hypertension [Unknown]
  - Anomaly of external ear congenital [Unknown]
  - Foot deformity [Unknown]
  - Cardio-respiratory arrest [Unknown]
  - Strabismus congenital [Unknown]
  - Cardiopulmonary failure [Unknown]
  - Cardiac murmur [Unknown]
  - Dehydration [Unknown]
  - Arrhythmia [Unknown]
  - Dysmorphism [Unknown]
  - Hyporeflexia [Unknown]
  - Patent ductus arteriosus [Unknown]
  - Brain malformation [Unknown]
  - Seizure [Unknown]
  - Gastrointestinal malformation [Unknown]
  - Dry skin [Unknown]
  - Hypotonia neonatal [Unknown]
  - Motor developmental delay [Unknown]
  - Renal failure [Unknown]
  - Premature baby [Unknown]
  - Congenital nose malformation [Unknown]
  - Hyperkalaemia [Unknown]
  - Neonatal respiratory distress syndrome [Unknown]
  - Coarctation of the aorta [Unknown]
  - Ill-defined disorder [Unknown]
  - Fat redistribution [Unknown]
  - Developmental delay [Unknown]
  - Psychomotor retardation [Not Recovered/Not Resolved]
  - Hypospadias [Unknown]
  - Prepuce redundant [Unknown]
  - Dilatation ventricular [Unknown]
  - Weight decreased [Unknown]
  - Pulmonary arterial hypertension [Unknown]
  - Foetal exposure during pregnancy [Unknown]
  - Movement disorder [Unknown]
  - Urticaria [Unknown]

NARRATIVE: CASE EVENT DATE: 20120411
